FAERS Safety Report 4373833-8 (Version None)
Quarter: 2004Q1

REPORT INFORMATION
  Report Type: 
  Country: None (occurrence: None)
  Receive Date: 20040305
  Receipt Date: 20040113
  Transmission Date: 20041129
  Serious: Yes (Other)
  Sender: FDA-Public Use
  Company Number: 2004UW00693

PATIENT
  Age: 60 Year
  Sex: Female

DRUGS (3)
  1. CRESTOR [Suspect]
     Dosage: 10 MG PO
     Route: 048
     Dates: start: 20040103, end: 20040112
  2. PLAVIX [Concomitant]
  3. ASPIRIN [Concomitant]

REACTIONS (4)
  - EYE REDNESS [None]
  - EYE SWELLING [None]
  - RASH [None]
  - URTICARIA [None]
